FAERS Safety Report 16707542 (Version 1)
Quarter: 2019Q3

REPORT INFORMATION
  Report Type: Spontaneous
  Country: PT (occurrence: PT)
  Receive Date: 20190815
  Receipt Date: 20190815
  Transmission Date: 20191004
  Serious: Yes (Other)
  Sender: FDA-Public Use
  Company Number: PHHY2019PT188273

PATIENT
  Age: 54 Year
  Sex: Male
  Weight: 107 kg

DRUGS (2)
  1. CETIRIZINE SANDOZ [Suspect]
     Active Substance: CETIRIZINE HYDROCHLORIDE
     Indication: ANTIALLERGIC THERAPY
     Dosage: 10 MG, QD (10 MG, 1X AO DIA, MANHA.)
     Route: 048
     Dates: start: 20190624, end: 20190630
  2. PULMICORT NASAL AQUA [Suspect]
     Active Substance: BUDESONIDE
     Indication: HYPERSENSITIVITY
     Dosage: 1 DF, QD (1X AO DIA, ? NOITE)
     Route: 045
     Dates: start: 20190624, end: 20190630

REACTIONS (2)
  - Chest discomfort [Not Recovered/Not Resolved]
  - Dyspnoea [Not Recovered/Not Resolved]

NARRATIVE: CASE EVENT DATE: 201906
